FAERS Safety Report 8963217 (Version 2)
Quarter: 2012Q4

REPORT INFORMATION
  Report Type: 
  Country: GB (occurrence: GB)
  Receive Date: 20121214
  Receipt Date: 20121231
  Transmission Date: 20130627
  Serious: Yes (Other)
  Sender: FDA-Public Use
  Company Number: GB-MPIJNJ-2012-08817

PATIENT

DRUGS (4)
  1. VELCADE [Suspect]
     Indication: PRODUCT USED FOR UNKNOWN INDICATION
  2. ADRIAMYCIN                         /00330901/ [Concomitant]
  3. DEXAMETHASONE [Concomitant]
  4. ANTHRACYCLINES AND RELATED SUBSTANCES [Concomitant]

REACTIONS (1)
  - Medical device complication [Unknown]
